APPROVED DRUG PRODUCT: VALSARTAN
Active Ingredient: VALSARTAN
Strength: 40MG
Dosage Form/Route: TABLET;ORAL
Application: A077530 | Product #001
Applicant: IVAX PHARMACEUTICALS INC
Approved: Jan 4, 2016 | RLD: No | RS: No | Type: DISCN